FAERS Safety Report 10152706 (Version 2)
Quarter: 2014Q2

REPORT INFORMATION
  Report Type: Spontaneous
  Country: US (occurrence: US)
  Receive Date: 20140505
  Receipt Date: 20140512
  Transmission Date: 20141212
  Serious: Yes (Death, Hospitalization)
  Sender: FDA-Public Use
  Company Number: US-JNJFOC-20140500632

PATIENT
  Age: 53 Year
  Sex: Male

DRUGS (3)
  1. INVOKANA [Suspect]
     Indication: TYPE 2 DIABETES MELLITUS
     Dosage: ON DRUG FOR APPROXIMATELY 2-3 MONTHS
     Route: 048
  2. METFORMIN [Concomitant]
  3. SULFONYLUREA AGENT [Concomitant]

REACTIONS (1)
  - Pancreatitis [Fatal]
